FAERS Safety Report 5412657-7 (Version None)
Quarter: 2007Q3

REPORT INFORMATION
  Report Type: 
  Country: None (occurrence: None)
  Receive Date: 20070813
  Receipt Date: 20070730
  Transmission Date: 20080115
  Serious: Yes (Other)
  Sender: FDA-Public Use
  Company Number: IE-ROCHE-507919

PATIENT
  Age: 26 Year
  Sex: Female
  Weight: 63.5 kg

DRUGS (3)
  1. ISOTRETINOIN [Suspect]
     Indication: ACNE
     Route: 048
     Dates: start: 20061010, end: 20070101
  2. ISOTRETINOIN [Suspect]
     Route: 048
     Dates: start: 20070119, end: 20070316
  3. YASMIN [Concomitant]
     Indication: ORAL CONTRACEPTION
     Route: 048

REACTIONS (3)
  - ARTHRALGIA [None]
  - JOINT CREPITATION [None]
  - PAIN [None]
